FAERS Safety Report 6367129-2 (Version None)
Quarter: 2009Q3

REPORT INFORMATION
  Report Type: 
  Country: None (occurrence: None)
  Receive Date: 20090921
  Receipt Date: 20090713
  Transmission Date: 20100115
  Serious: No
  Sender: FDA-Public Use
  Company Number: US-BAYER-200926392NA

PATIENT
  Age: 49 Year
  Sex: Female
  Weight: 57 kg

DRUGS (2)
  1. MIRENA [Suspect]
     Indication: VAGINAL HAEMORRHAGE
     Dosage: CONTINUOUS
     Route: 015
     Dates: start: 20070301
  2. HYDROCHLOROTHIAZIDE [Concomitant]

REACTIONS (3)
  - AMENORRHOEA [None]
  - MENORRHAGIA [None]
  - VAGINAL HAEMORRHAGE [None]
